FAERS Safety Report 18202948 (Version 1)
Quarter: 2020Q3

REPORT INFORMATION
  Report Type: Spontaneous
  Country: US (occurrence: US)
  Receive Date: 20200827
  Receipt Date: 20200827
  Transmission Date: 20201103
  Serious: No
  Sender: FDA-Public Use
  Company Number: US-THERAPEUTICSMD-2020TMD02944

PATIENT
  Age: 27 Year
  Sex: Female

DRUGS (1)
  1. ANNOVERA [Suspect]
     Active Substance: ETHINYL ESTRADIOL\SEGESTERONE ACETATE
     Dosage: 1 RING
     Route: 067
     Dates: start: 202006

REACTIONS (3)
  - Abdominal distension [Unknown]
  - Nausea [Unknown]
  - Breast swelling [Unknown]

NARRATIVE: CASE EVENT DATE: 202006
